FAERS Safety Report 22001242 (Version 1)
Quarter: 2023Q1

REPORT INFORMATION
  Report Type: Report from Study
  Country: CO (occurrence: CO)
  Receive Date: 20230216
  Receipt Date: 20230216
  Transmission Date: 20230418
  Serious: Yes (Hospitalization, Other)
  Sender: FDA-Public Use
  Company Number: CO-002147023-NVSC2022CO009451

PATIENT
  Age: 19 Year
  Sex: Female

DRUGS (3)
  1. ELTROMBOPAG OLAMINE [Suspect]
     Active Substance: ELTROMBOPAG OLAMINE
     Indication: Immune thrombocytopenia
     Dosage: 50 MG, QD
     Route: 048
  2. ELTROMBOPAG OLAMINE [Suspect]
     Active Substance: ELTROMBOPAG OLAMINE
     Dosage: UNK
     Route: 048
  3. ELTROMBOPAG OLAMINE [Suspect]
     Active Substance: ELTROMBOPAG OLAMINE
     Dosage: 75 MG, QD (THREE TABLETS)
     Route: 048

REACTIONS (13)
  - Platelet count decreased [Unknown]
  - Disease recurrence [Unknown]
  - Anaemia [Unknown]
  - Urinary tract infection [Unknown]
  - Illness [Unknown]
  - Malaise [Unknown]
  - Peripheral swelling [Unknown]
  - Dizziness [Unknown]
  - Feeling abnormal [Unknown]
  - Yellow skin [Unknown]
  - Blood pressure decreased [Unknown]
  - Depressed mood [Unknown]
  - Skin reaction [Unknown]
